FAERS Safety Report 4343685-0 (Version None)
Quarter: 2004Q2

REPORT INFORMATION
  Report Type: 
  Country: None (occurrence: None)
  Receive Date: 20040422
  Receipt Date: 20040318
  Transmission Date: 20050107
  Serious: Yes (Death)
  Sender: FDA-Public Use
  Company Number: 200410954JP

PATIENT
  Age: 60 Year
  Sex: Male

DRUGS (4)
  1. TAXOTERE [Suspect]
     Indication: METASTASES TO BONE
     Route: 041
     Dates: start: 20020627, end: 20020819
  2. TAXOTERE [Suspect]
     Indication: NON-SMALL CELL LUNG CANCER RECURRENT
     Route: 041
     Dates: start: 20020627, end: 20020819
  3. GEMZAR [Suspect]
     Indication: METASTASES TO BONE
     Route: 041
     Dates: start: 20020627, end: 20020819
  4. GEMZAR [Suspect]
     Indication: NON-SMALL CELL LUNG CANCER RECURRENT
     Route: 041
     Dates: start: 20020627, end: 20020819

REACTIONS (7)
  - BLOOD LACTATE DEHYDROGENASE INCREASED [None]
  - C-REACTIVE PROTEIN INCREASED [None]
  - LUNG INFILTRATION [None]
  - LYMPHADENOPATHY MEDIASTINAL [None]
  - METASTASES TO BONE [None]
  - PNEUMONITIS [None]
  - RESPIRATORY FAILURE [None]
